FAERS Safety Report 9855472 (Version 1)
Quarter: 2013Q4

REPORT INFORMATION
  Report Type: Spontaneous
  Country: US (occurrence: None)
  Receive Date: 20131226
  Receipt Date: 20131226
  Transmission Date: 20140711
  Serious: Yes (Other)
  Sender: FDA-Public Use
  Company Number: PHEH2012US019201

PATIENT
  Sex: Female

DRUGS (1)
  1. SANDOSTATIN LAR [Suspect]
     Indication: NEUROENDOCRINE CARCINOMA METASTATIC
     Route: 030

REACTIONS (9)
  - Malignant neoplasm progression [None]
  - Musculoskeletal discomfort [None]
  - Bowel movement irregularity [None]
  - Back pain [None]
  - Fatigue [None]
  - Dizziness [None]
  - Headache [None]
  - Constipation [None]
  - Diarrhoea [None]
